FAERS Safety Report 5680053-3 (Version None)
Quarter: 2008Q1

REPORT INFORMATION
  Report Type: 
  Country: None (occurrence: None)
  Receive Date: 20080326
  Receipt Date: 20080326
  Transmission Date: 20080703
  Serious: Yes (Other)
  Sender: FDA-Public Use
  Company Number: None

PATIENT
  Sex: Female
  Weight: 95.2554 kg

DRUGS (1)
  1. LYRICA [Suspect]
     Indication: RADICULOPATHY
     Dates: start: 20070305, end: 20080324

REACTIONS (5)
  - ABDOMINAL DISTENSION [None]
  - ALOPECIA [None]
  - RASH [None]
  - VISION BLURRED [None]
  - WEIGHT INCREASED [None]
